FAERS Safety Report 25340834 (Version 2)
Quarter: 2025Q2

REPORT INFORMATION
  Report Type: Other
  Country: GB (occurrence: GB)
  Receive Date: 20250521
  Receipt Date: 20250527
  Transmission Date: 20250717
  Serious: Yes (Life-Threatening, Hospitalization, Other)
  Sender: MACLEODS
  Company Number: GB-002147023-NVSC2023GB143911

PATIENT

DRUGS (17)
  1. ESOMEPRAZOLE [Suspect]
     Active Substance: ESOMEPRAZOLE
     Indication: Gastrointestinal disorder
     Dosage: 20 MG (TABLET), QD
     Route: 048
  2. SILDENAFIL [Suspect]
     Active Substance: SILDENAFIL
     Indication: Erectile dysfunction
     Route: 048
  3. CITALOPRAM [Suspect]
     Active Substance: CITALOPRAM
     Indication: Anxiety
     Dosage: 20 MG (TABLET), QD
     Route: 048
  4. COSENTYX [Suspect]
     Active Substance: SECUKINUMAB
     Indication: Psoriasis
     Route: 058
  5. COSENTYX [Suspect]
     Active Substance: SECUKINUMAB
     Route: 058
  6. COSENTYX [Suspect]
     Active Substance: SECUKINUMAB
     Route: 065
     Dates: start: 202501
  7. COSENTYX [Suspect]
     Active Substance: SECUKINUMAB
     Route: 065
     Dates: start: 202412
  8. PROTOPIC [Suspect]
     Active Substance: TACROLIMUS
     Indication: Psoriasis
     Route: 065
  9. CLOBETASONE BUTYRATE [Suspect]
     Active Substance: CLOBETASONE BUTYRATE
     Indication: Candida infection
     Route: 065
  10. CLOBETASONE BUTYRATE [Suspect]
     Active Substance: CLOBETASONE BUTYRATE
     Indication: Psoriasis
  11. COCODAMOL [Concomitant]
     Active Substance: ACETAMINOPHEN\CODEINE PHOSPHATE
     Indication: Product used for unknown indication
     Route: 065
  12. MORPHINE [Concomitant]
     Active Substance: MORPHINE
     Indication: Product used for unknown indication
     Route: 065
  13. PREDNISOLONE [Concomitant]
     Active Substance: PREDNISOLONE
     Indication: Product used for unknown indication
     Route: 065
  14. MORPHINE SULFATE [Concomitant]
     Active Substance: MORPHINE SULFATE
     Indication: Product used for unknown indication
     Route: 065
  15. OMEPRAZOLE [Concomitant]
     Active Substance: OMEPRAZOLE
     Indication: Product used for unknown indication
     Route: 065
  16. AMITRIPTYLINE [Concomitant]
     Active Substance: AMITRIPTYLINE
     Indication: Product used for unknown indication
     Route: 065
  17. VIAGRA [Concomitant]
     Active Substance: SILDENAFIL CITRATE
     Indication: Product used for unknown indication
     Route: 065

REACTIONS (25)
  - Pneumonia [Recovering/Resolving]
  - General physical health deterioration [Unknown]
  - Feeling abnormal [Unknown]
  - Cellulitis [Unknown]
  - Malaise [Unknown]
  - Mental disorder [Not Recovered/Not Resolved]
  - Ear infection [Unknown]
  - Upper respiratory tract infection [Unknown]
  - Full blood count abnormal [Unknown]
  - Cholesteatoma [Unknown]
  - Impaired healing [Unknown]
  - Hyperhidrosis [Unknown]
  - Confusional state [Unknown]
  - Psoriasis [Unknown]
  - Dyspnoea [Unknown]
  - Lung disorder [Unknown]
  - Skin disorder [Unknown]
  - Bone disorder [Unknown]
  - Infection [Unknown]
  - Oral candidiasis [Recovered/Resolved]
  - Ear, nose and throat infection [Unknown]
  - Inappropriate schedule of product administration [Unknown]
  - Drug dose omission by device [Unknown]
  - Device defective [Unknown]
  - Device issue [Unknown]

NARRATIVE: CASE EVENT DATE: 20250319
